FAERS Safety Report 4816619-X (Version None)
Quarter: 2005Q4

REPORT INFORMATION
  Report Type: 
  Country: None (occurrence: None)
  Receive Date: 20051028
  Receipt Date: 20051013
  Transmission Date: 20060501
  Serious: Yes (Hospitalization)
  Sender: FDA-Public Use
  Company Number: 05-NIP00098

PATIENT
  Age: 79 Year
  Sex: Male
  Weight: 70.1261 kg

DRUGS (14)
  1. NIPENT [Suspect]
     Indication: B-CELL SMALL LYMPHOCYTIC LYMPHOMA
     Dosage: 0.1905 MG/M2 (4 MG/M2,Q21D), INTRAVENOUS
     Route: 042
     Dates: start: 20050906
  2. NIPENT [Suspect]
     Indication: CHRONIC LYMPHOCYTIC LEUKAEMIA
     Dosage: 0.1905 MG/M2 (4 MG/M2,Q21D), INTRAVENOUS
     Route: 042
     Dates: start: 20050906
  3. RITUXAN [Suspect]
     Dosage: 17.8571 MG/M2 (375 MG/M2,Q21D), INTRAVENOUS
     Route: 042
     Dates: start: 20050906
  4. NORVASC [Concomitant]
  5. ASPIRIN [Concomitant]
  6. PROSCAR [Concomitant]
  7. VITORIN [Concomitant]
  8. LISINOPRIL [Concomitant]
  9. TOPROL (TOPROL XL) [Concomitant]
  10. SULFA [Concomitant]
  11. NEUPOGEN [Concomitant]
  12. DOXAZOSIN [Concomitant]
  13. VALTREX [Concomitant]
  14. ALLOPURINOL [Concomitant]

REACTIONS (12)
  - ATRIAL FIBRILLATION [None]
  - BACK PAIN [None]
  - BENIGN PROSTATIC HYPERPLASIA [None]
  - CITROBACTER INFECTION [None]
  - DEHYDRATION [None]
  - DILATATION ATRIAL [None]
  - OEDEMA PERIPHERAL [None]
  - PAIN IN EXTREMITY [None]
  - PNEUMONIA [None]
  - RENAL FAILURE [None]
  - URINARY TRACT INFECTION [None]
  - URINARY TRACT OBSTRUCTION [None]
